FAERS Safety Report 12244227 (Version 3)
Quarter: 2016Q3

REPORT INFORMATION
  Report Type: Report from Study
  Country: CO (occurrence: CO)
  Receive Date: 20160407
  Receipt Date: 20160713
  Transmission Date: 20161109
  Serious: Yes (Death, Hospitalization, Other)
  Sender: FDA-Public Use
  Company Number: CO-AMGEN-COLSP2016042622

PATIENT
  Sex: Female

DRUGS (1)
  1. CARFILZOMIB [Suspect]
     Active Substance: CARFILZOMIB
     Indication: PLASMA CELL MYELOMA
     Dosage: 95 MG, EVERY 28 DAYS
     Route: 042
     Dates: end: 20160314

REACTIONS (2)
  - Chronic kidney disease [Fatal]
  - Pneumonia [Fatal]
